FAERS Safety Report 7758498-7 (Version None)
Quarter: 2011Q3

REPORT INFORMATION
  Report Type: 
  Country: None (occurrence: None)
  Receive Date: 20110919
  Receipt Date: 20110907
  Transmission Date: 20111222
  Serious: Yes (Other)
  Sender: FDA-Public Use
  Company Number: CA-UCBSA-040661

PATIENT
  Age: 15 Year
  Sex: Male

DRUGS (3)
  1. LAMICTAL [Concomitant]
     Indication: GRAND MAL CONVULSION
  2. DILANTIN [Concomitant]
     Indication: GRAND MAL CONVULSION
  3. VIMPAT [Suspect]
     Indication: GRAND MAL CONVULSION
     Dosage: UNKNOWN PREVIOUS DOSE
     Dates: start: 20110101, end: 20110101

REACTIONS (3)
  - CONVULSION [None]
  - STARING [None]
  - ABNORMAL BEHAVIOUR [None]
